FAERS Safety Report 4320197-1 (Version None)
Quarter: 2004Q1

REPORT INFORMATION
  Report Type: 
  Country: None (occurrence: None)
  Receive Date: 20040317
  Receipt Date: 20040305
  Transmission Date: 20041129
  Serious: No
  Sender: FDA-Public Use
  Company Number: 2004-113640-NL

PATIENT

DRUGS (1)
  1. MENOTROPINS [Suspect]
     Indication: INFERTILITY

REACTIONS (1)
  - BREAST CANCER [None]
